FAERS Safety Report 24616358 (Version 1)
Quarter: 2024Q4

REPORT INFORMATION
  Report Type: Spontaneous
  Country: CA (occurrence: CA)
  Receive Date: 20241114
  Receipt Date: 20241114
  Transmission Date: 20250115
  Serious: Yes (Death, Life-Threatening, Hospitalization, Disabling, Other)
  Sender: Haleon PLC
  Company Number: CA-SANDOZ-SDZ2023CA076612

PATIENT
  Age: 44 Year
  Sex: Female
  Weight: 70 kg

DRUGS (232)
  1. DICLOFENAC SODIUM [Suspect]
     Active Substance: DICLOFENAC SODIUM
     Indication: Product used for unknown indication
  2. SULFAMETHOXAZOLE [Suspect]
     Active Substance: SULFAMETHOXAZOLE
     Indication: Product used for unknown indication
     Route: 065
  3. SOLU-MEDROL [Suspect]
     Active Substance: METHYLPREDNISOLONE SODIUM SUCCINATE
     Indication: Product used for unknown indication
     Route: 048
  4. MAGNESIUM [Concomitant]
     Active Substance: MAGNESIUM
     Indication: Product used for unknown indication
  5. DESOXIMETASONE [Suspect]
     Active Substance: DESOXIMETASONE
     Indication: Rheumatoid arthritis
  6. DESOXIMETASONE [Suspect]
     Active Substance: DESOXIMETASONE
     Route: 048
  7. DESOXIMETASONE [Suspect]
     Active Substance: DESOXIMETASONE
  8. DESOXIMETASONE [Suspect]
     Active Substance: DESOXIMETASONE
  9. DESOXIMETASONE [Suspect]
     Active Substance: DESOXIMETASONE
     Route: 048
  10. DESOXIMETASONE [Suspect]
     Active Substance: DESOXIMETASONE
  11. DESOXIMETASONE [Suspect]
     Active Substance: DESOXIMETASONE
     Route: 048
  12. DESOXIMETASONE [Suspect]
     Active Substance: DESOXIMETASONE
     Route: 048
  13. NAPROXEN [Suspect]
     Active Substance: NAPROXEN
     Indication: Rheumatoid arthritis
     Dosage: 1000 MG, QD (500 MG, BID)
     Route: 065
  14. CHLORAPREP [Suspect]
     Active Substance: CHLORHEXIDINE GLUCONATE\ISOPROPYL ALCOHOL
     Indication: Product used for unknown indication
     Route: 061
  15. CHLORAPREP [Suspect]
     Active Substance: CHLORHEXIDINE GLUCONATE\ISOPROPYL ALCOHOL
  16. MORPHINE [Concomitant]
     Active Substance: MORPHINE
     Indication: Product used for unknown indication
  17. MELOXICAM [Concomitant]
     Active Substance: MELOXICAM
     Indication: Product used for unknown indication
  18. DICLOFENAC POTASSIUM [Suspect]
     Active Substance: DICLOFENAC POTASSIUM
     Indication: Product used for unknown indication
     Route: 048
  19. CIMZIA [Suspect]
     Active Substance: CERTOLIZUMAB PEGOL
     Indication: Rheumatoid arthritis
     Route: 042
  20. CIMZIA [Suspect]
     Active Substance: CERTOLIZUMAB PEGOL
     Indication: Psoriatic arthropathy
     Route: 058
  21. CIMZIA [Suspect]
     Active Substance: CERTOLIZUMAB PEGOL
     Route: 058
  22. REMICADE [Suspect]
     Active Substance: INFLIXIMAB
     Indication: Rheumatoid arthritis
     Route: 042
  23. REMICADE [Suspect]
     Active Substance: INFLIXIMAB
     Indication: Psoriatic arthropathy
     Route: 042
  24. REMICADE [Suspect]
     Active Substance: INFLIXIMAB
     Route: 065
  25. REMICADE [Suspect]
     Active Substance: INFLIXIMAB
     Route: 042
  26. REMICADE [Suspect]
     Active Substance: INFLIXIMAB
     Route: 065
  27. REMICADE [Suspect]
     Active Substance: INFLIXIMAB
     Route: 042
  28. ARAVA [Suspect]
     Active Substance: LEFLUNOMIDE
     Indication: Rheumatoid arthritis
     Route: 048
  29. ARAVA [Suspect]
     Active Substance: LEFLUNOMIDE
  30. ARAVA [Suspect]
     Active Substance: LEFLUNOMIDE
     Route: 048
  31. XELJANZ [Suspect]
     Active Substance: TOFACITINIB CITRATE
     Indication: Rheumatoid arthritis
     Route: 065
  32. XELJANZ [Suspect]
     Active Substance: TOFACITINIB CITRATE
     Dosage: 8 MG, QD (4 MG, BID)
     Route: 065
  33. XELJANZ [Suspect]
     Active Substance: TOFACITINIB CITRATE
     Dosage: 10 MG, QD (5 MG, BID)
     Route: 065
  34. XELJANZ [Suspect]
     Active Substance: TOFACITINIB CITRATE
     Dosage: 10 MG, QD (5 G, BID)
     Route: 048
  35. XELJANZ [Suspect]
     Active Substance: TOFACITINIB CITRATE
     Route: 065
  36. XELJANZ [Suspect]
     Active Substance: TOFACITINIB CITRATE
     Route: 065
  37. XELJANZ [Suspect]
     Active Substance: TOFACITINIB CITRATE
     Route: 048
  38. FOSAMAX [Suspect]
     Active Substance: ALENDRONATE SODIUM
     Indication: Rheumatoid arthritis
  39. FOSAMAX [Suspect]
     Active Substance: ALENDRONATE SODIUM
  40. FOSAMAX [Suspect]
     Active Substance: ALENDRONATE SODIUM
     Route: 048
  41. FOSAMAX [Suspect]
     Active Substance: ALENDRONATE SODIUM
  42. FOSAMAX [Suspect]
     Active Substance: ALENDRONATE SODIUM
     Route: 058
  43. FOSAMAX [Suspect]
     Active Substance: ALENDRONATE SODIUM
     Route: 048
  44. FOSAMAX [Suspect]
     Active Substance: ALENDRONATE SODIUM
     Route: 048
  45. FOSAMAX [Suspect]
     Active Substance: ALENDRONATE SODIUM
  46. PERIOGARD [Suspect]
     Active Substance: CHLORHEXIDINE GLUCONATE
     Indication: Product used for unknown indication
     Route: 002
  47. ALENDRONATE SODIUM [Suspect]
     Active Substance: ALENDRONATE SODIUM
     Indication: Rheumatoid arthritis
  48. ALENDRONATE SODIUM [Suspect]
     Active Substance: ALENDRONATE SODIUM
     Route: 048
  49. CETIRIZINE HYDROCHLORIDE [Suspect]
     Active Substance: CETIRIZINE HYDROCHLORIDE
     Indication: Rheumatoid arthritis
  50. CETIRIZINE HYDROCHLORIDE [Suspect]
     Active Substance: CETIRIZINE HYDROCHLORIDE
  51. CETIRIZINE HYDROCHLORIDE [Suspect]
     Active Substance: CETIRIZINE HYDROCHLORIDE
  52. CETIRIZINE HYDROCHLORIDE [Suspect]
     Active Substance: CETIRIZINE HYDROCHLORIDE
  53. FISH OIL [Concomitant]
     Active Substance: FISH OIL
     Indication: Product used for unknown indication
     Route: 065
  54. FOLIC ACID [Suspect]
     Active Substance: FOLIC ACID
     Indication: Rheumatoid arthritis
  55. FOLIC ACID [Suspect]
     Active Substance: FOLIC ACID
  56. FOLIC ACID [Suspect]
     Active Substance: FOLIC ACID
  57. FOLIC ACID [Suspect]
     Active Substance: FOLIC ACID
  58. FOLIC ACID [Suspect]
     Active Substance: FOLIC ACID
     Route: 058
  59. FOLIC ACID [Suspect]
     Active Substance: FOLIC ACID
  60. PHTHALYLSULFATHIAZOLE [Suspect]
     Active Substance: PHTHALYLSULFATHIAZOLE
     Indication: Rheumatoid arthritis
     Route: 048
  61. PHTHALYLSULFATHIAZOLE [Suspect]
     Active Substance: PHTHALYLSULFATHIAZOLE
     Route: 048
  62. PHTHALYLSULFATHIAZOLE [Suspect]
     Active Substance: PHTHALYLSULFATHIAZOLE
  63. PHTHALYLSULFATHIAZOLE [Suspect]
     Active Substance: PHTHALYLSULFATHIAZOLE
  64. PHTHALYLSULFATHIAZOLE [Suspect]
     Active Substance: PHTHALYLSULFATHIAZOLE
     Route: 048
  65. PHTHALYLSULFATHIAZOLE [Suspect]
     Active Substance: PHTHALYLSULFATHIAZOLE
  66. DESOGESTREL [Concomitant]
     Active Substance: DESOGESTREL
     Indication: Product used for unknown indication
  67. TRAMADOL HYDROCHLORIDE [Suspect]
     Active Substance: TRAMADOL HYDROCHLORIDE
     Indication: Product used for unknown indication
  68. OXYCODONE [Suspect]
     Active Substance: OXYCODONE
     Indication: Product used for unknown indication
     Route: 042
  69. OXYCODONE [Suspect]
     Active Substance: OXYCODONE
     Dosage: 6 MG, QD (3 MG, BID)
     Route: 065
  70. DIETARY SUPPLEMENT\HERBALS [Suspect]
     Active Substance: DIETARY SUPPLEMENT\HERBALS
     Indication: Product used for unknown indication
     Route: 065
  71. CHOLECALCIFEROL [Suspect]
     Active Substance: CHOLECALCIFEROL
     Indication: Product used for unknown indication
     Route: 016
  72. CHOLECALCIFEROL [Suspect]
     Active Substance: CHOLECALCIFEROL
  73. CAFFEINE [Concomitant]
     Active Substance: CAFFEINE
     Indication: Product used for unknown indication
  74. SIMPONI [Suspect]
     Active Substance: GOLIMUMAB
     Indication: Rheumatoid arthritis
     Route: 058
  75. RITUXIMAB [Suspect]
     Active Substance: RITUXIMAB
     Indication: Rheumatoid arthritis
     Route: 065
  76. RITUXIMAB [Suspect]
     Active Substance: RITUXIMAB
     Route: 065
  77. RITUXIMAB [Suspect]
     Active Substance: RITUXIMAB
     Route: 058
  78. RITUXIMAB [Suspect]
     Active Substance: RITUXIMAB
     Route: 042
  79. RITUXIMAB [Suspect]
     Active Substance: RITUXIMAB
     Route: 042
  80. RITUXIMAB [Suspect]
     Active Substance: RITUXIMAB
     Route: 042
  81. ZOPICLONE [Concomitant]
     Active Substance: ZOPICLONE
     Indication: Product used for unknown indication
  82. HUMIRA [Suspect]
     Active Substance: ADALIMUMAB
     Indication: Psoriatic arthropathy
     Route: 058
  83. HUMIRA [Suspect]
     Active Substance: ADALIMUMAB
     Indication: Rheumatoid arthritis
     Route: 058
  84. HUMIRA [Suspect]
     Active Substance: ADALIMUMAB
     Route: 057
  85. HUMIRA [Suspect]
     Active Substance: ADALIMUMAB
     Dosage: 40 MG (CYCLIC)
     Route: 058
  86. TYLENOL [Concomitant]
     Active Substance: ACETAMINOPHEN
     Indication: Product used for unknown indication
  87. ERGOCALCIFEROL [Concomitant]
     Active Substance: ERGOCALCIFEROL
     Indication: Product used for unknown indication
  88. APREPITANT [Suspect]
     Active Substance: APREPITANT
     Indication: Product used for unknown indication
     Route: 042
  89. APREPITANT [Suspect]
     Active Substance: APREPITANT
  90. HYDROCORTISONE [Suspect]
     Active Substance: HYDROCORTISONE
     Indication: Rheumatoid arthritis
  91. HYDROCORTISONE [Suspect]
     Active Substance: HYDROCORTISONE
  92. HYDROCORTISONE [Suspect]
     Active Substance: HYDROCORTISONE
     Route: 058
  93. HYDROCORTISONE [Suspect]
     Active Substance: HYDROCORTISONE
     Route: 048
  94. HYDROCORTISONE [Suspect]
     Active Substance: HYDROCORTISONE
  95. PREDNISOLONE [Concomitant]
     Active Substance: PREDNISOLONE
     Indication: Product used for unknown indication
  96. SULFASALAZINE [Suspect]
     Active Substance: SULFASALAZINE
     Indication: Rheumatoid arthritis
     Route: 065
  97. SULFASALAZINE [Suspect]
     Active Substance: SULFASALAZINE
     Dosage: 2 G, QD (1G, BID)
     Route: 048
  98. SULFASALAZINE [Suspect]
     Active Substance: SULFASALAZINE
     Dosage: (1000 MG, BID)
     Route: 048
  99. SULFASALAZINE [Suspect]
     Active Substance: SULFASALAZINE
     Dosage: (1500 MG, BID)
     Route: 065
  100. SULFASALAZINE [Suspect]
     Active Substance: SULFASALAZINE
     Dosage: (2 DOSAGE FORM, BID)
     Route: 048
  101. SULFASALAZINE [Suspect]
     Active Substance: SULFASALAZINE
     Dosage: (1000 MG, BID)
     Route: 048
  102. SULFASALAZINE [Suspect]
     Active Substance: SULFASALAZINE
     Dosage: (1500 MG, BID)
     Route: 065
  103. SULFASALAZINE [Suspect]
     Active Substance: SULFASALAZINE
     Route: 048
  104. SULFASALAZINE [Suspect]
     Active Substance: SULFASALAZINE
     Dosage: (2 DOSAGE FORM, QD 91 DOSAGE FORM, BID)
     Route: 048
  105. SULFASALAZINE [Suspect]
     Active Substance: SULFASALAZINE
     Dosage: 2 G, QD (1G, BID)
     Route: 058
  106. HYDROXYCHLOROQUINE [Suspect]
     Active Substance: HYDROXYCHLOROQUINE
     Indication: Rheumatoid arthritis
  107. HYDROXYCHLOROQUINE [Suspect]
     Active Substance: HYDROXYCHLOROQUINE
     Dosage: 400 MG, QD (200 MG, BID)
  108. HYDROXYCHLOROQUINE [Suspect]
     Active Substance: HYDROXYCHLOROQUINE
     Route: 048
  109. HYDROXYCHLOROQUINE [Suspect]
     Active Substance: HYDROXYCHLOROQUINE
  110. HYDROXYCHLOROQUINE [Suspect]
     Active Substance: HYDROXYCHLOROQUINE
     Route: 048
  111. HYDROXYCHLOROQUINE [Suspect]
     Active Substance: HYDROXYCHLOROQUINE
  112. HYDROXYCHLOROQUINE [Suspect]
     Active Substance: HYDROXYCHLOROQUINE
  113. LANSOPRAZOLE [Concomitant]
     Active Substance: LANSOPRAZOLE
     Indication: Product used for unknown indication
  114. PSEUDOEPHEDRINE [Suspect]
     Active Substance: PSEUDOEPHEDRINE
     Indication: Sinusitis
     Route: 065
  115. PSEUDOEPHEDRINE [Suspect]
     Active Substance: PSEUDOEPHEDRINE
     Route: 065
  116. DOXYCYCLINE HYCLATE [Suspect]
     Active Substance: DOXYCYCLINE HYCLATE
     Indication: Product used for unknown indication
  117. DOXYCYCLINE HYCLATE [Suspect]
     Active Substance: DOXYCYCLINE HYCLATE
  118. IBUPROFEN [Concomitant]
     Active Substance: IBUPROFEN
     Indication: Product used for unknown indication
  119. ACETAMINOPHEN AND CODEINE [Concomitant]
     Active Substance: ACETAMINOPHEN\CODEINE PHOSPHATE
     Indication: Product used for unknown indication
  120. TRIAMCINOLONE ACETONIDE [Suspect]
     Active Substance: TRIAMCINOLONE ACETONIDE
     Indication: Rheumatoid arthritis
     Route: 014
  121. ADALIMUMAB [Suspect]
     Active Substance: ADALIMUMAB
     Indication: Rheumatoid arthritis
     Route: 058
  122. PREDNISONE [Suspect]
     Active Substance: PREDNISONE
     Indication: Rheumatoid arthritis
     Route: 048
  123. PREDNISONE [Suspect]
     Active Substance: PREDNISONE
     Route: 048
  124. PREDNISONE [Suspect]
     Active Substance: PREDNISONE
     Route: 065
  125. PREDNISONE [Suspect]
     Active Substance: PREDNISONE
     Route: 048
  126. CETIRIZINE [Suspect]
     Active Substance: CETIRIZINE HYDROCHLORIDE
     Indication: Rheumatoid arthritis
  127. CETIRIZINE [Suspect]
     Active Substance: CETIRIZINE HYDROCHLORIDE
     Route: 048
  128. CETIRIZINE [Suspect]
     Active Substance: CETIRIZINE HYDROCHLORIDE
  129. CETIRIZINE [Suspect]
     Active Substance: CETIRIZINE HYDROCHLORIDE
  130. CETIRIZINE [Suspect]
     Active Substance: CETIRIZINE HYDROCHLORIDE
  131. CETIRIZINE [Suspect]
     Active Substance: CETIRIZINE HYDROCHLORIDE
  132. ACTEMRA [Suspect]
     Active Substance: TOCILIZUMAB
     Indication: Product used for unknown indication
     Route: 042
  133. ACTEMRA [Suspect]
     Active Substance: TOCILIZUMAB
     Indication: Rheumatoid arthritis
     Route: 058
  134. ACTEMRA [Suspect]
     Active Substance: TOCILIZUMAB
     Route: 042
  135. ACTEMRA [Suspect]
     Active Substance: TOCILIZUMAB
  136. ACTEMRA [Suspect]
     Active Substance: TOCILIZUMAB
     Route: 058
  137. ACTEMRA [Suspect]
     Active Substance: TOCILIZUMAB
  138. ACTEMRA [Suspect]
     Active Substance: TOCILIZUMAB
     Route: 061
  139. ACTEMRA [Suspect]
     Active Substance: TOCILIZUMAB
     Route: 058
  140. ACTEMRA [Suspect]
     Active Substance: TOCILIZUMAB
  141. ACTEMRA [Suspect]
     Active Substance: TOCILIZUMAB
     Route: 016
  142. ACTEMRA [Suspect]
     Active Substance: TOCILIZUMAB
     Route: 058
  143. SULFASALAZINE [Concomitant]
     Active Substance: SULFASALAZINE
     Indication: Product used for unknown indication
  144. FLUMETHASONE PIVALATE [Suspect]
     Active Substance: FLUMETHASONE PIVALATE
     Indication: Product used for unknown indication
     Route: 003
  145. PIROXICAM [Concomitant]
     Active Substance: PIROXICAM
     Indication: Product used for unknown indication
  146. OTEZLA [Suspect]
     Active Substance: APREMILAST
     Indication: Product used for unknown indication
     Dosage: 6 MG, QD (3 MG, BID)
     Route: 048
  147. DEXAMETHASONE [Concomitant]
     Active Substance: DEXAMETHASONE
     Indication: Product used for unknown indication
  148. ENBREL [Suspect]
     Active Substance: ETANERCEPT
     Indication: Psoriatic arthropathy
     Route: 058
  149. ENBREL [Suspect]
     Active Substance: ETANERCEPT
     Indication: Psoriasis
     Route: 058
  150. ENBREL [Suspect]
     Active Substance: ETANERCEPT
     Indication: Rheumatoid arthritis
     Route: 058
  151. ENBREL [Suspect]
     Active Substance: ETANERCEPT
     Route: 058
  152. ENBREL [Suspect]
     Active Substance: ETANERCEPT
     Route: 058
  153. ENBREL [Suspect]
     Active Substance: ETANERCEPT
     Route: 058
  154. ENBREL [Suspect]
     Active Substance: ETANERCEPT
     Route: 058
  155. ENBREL [Suspect]
     Active Substance: ETANERCEPT
     Route: 058
  156. ENBREL [Suspect]
     Active Substance: ETANERCEPT
     Route: 048
  157. ENBREL [Suspect]
     Active Substance: ETANERCEPT
     Route: 058
  158. DESOXIMETASONE [Suspect]
     Active Substance: DESOXIMETASONE
     Indication: Rheumatoid arthritis
  159. CORTISONE [Suspect]
     Active Substance: CORTISONE
     Indication: Rheumatoid arthritis
     Route: 061
  160. CORTISONE [Suspect]
     Active Substance: CORTISONE
     Route: 003
  161. CORTISONE [Suspect]
     Active Substance: CORTISONE
     Route: 061
  162. METHOTREXATE [Suspect]
     Active Substance: METHOTREXATE
     Indication: Psoriatic arthropathy
     Route: 058
  163. METHOTREXATE [Suspect]
     Active Substance: METHOTREXATE
     Indication: Rheumatoid arthritis
     Route: 048
  164. METHOTREXATE [Suspect]
     Active Substance: METHOTREXATE
     Route: 048
  165. METHOTREXATE [Suspect]
     Active Substance: METHOTREXATE
     Route: 065
  166. METHOTREXATE [Suspect]
     Active Substance: METHOTREXATE
     Route: 065
  167. METHOTREXATE [Suspect]
     Active Substance: METHOTREXATE
     Route: 048
  168. METHOTREXATE [Suspect]
     Active Substance: METHOTREXATE
     Route: 065
  169. METHOTREXATE [Suspect]
     Active Substance: METHOTREXATE
     Route: 048
  170. METHOTREXATE [Suspect]
     Active Substance: METHOTREXATE
     Route: 013
  171. METHOTREXATE [Suspect]
     Active Substance: METHOTREXATE
     Route: 065
  172. CHLORHEXIDINE [Suspect]
     Active Substance: CHLORHEXIDINE
     Indication: Product used for unknown indication
     Route: 002
  173. CHLORHEXIDINE [Suspect]
     Active Substance: CHLORHEXIDINE
     Route: 048
  174. CHLORHEXIDINE [Suspect]
     Active Substance: CHLORHEXIDINE
     Route: 061
  175. CHLORHEXIDINE [Suspect]
     Active Substance: CHLORHEXIDINE
  176. ZESTRIL [Concomitant]
     Active Substance: LISINOPRIL
     Indication: Product used for unknown indication
  177. GLUCOSAMINE [Concomitant]
     Active Substance: GLUCOSAMINE
     Indication: Product used for unknown indication
  178. CELEBREX [Suspect]
     Active Substance: CELECOXIB
     Indication: Arthritis
     Route: 048
  179. CELEBREX [Suspect]
     Active Substance: CELECOXIB
  180. CELEBREX [Suspect]
     Active Substance: CELECOXIB
  181. CELEBREX [Suspect]
     Active Substance: CELECOXIB
     Route: 048
  182. LEVOTHYROXINE SODIUM [Concomitant]
     Active Substance: LEVOTHYROXINE SODIUM
     Indication: Product used for unknown indication
  183. TYLENOL WITH CODEINE [Concomitant]
     Active Substance: ACETAMINOPHEN\CODEINE PHOSPHATE
     Indication: Product used for unknown indication
  184. COSENTYX [Concomitant]
     Active Substance: SECUKINUMAB
     Indication: Product used for unknown indication
  185. PANTOPRAZOLE [Suspect]
     Active Substance: PANTOPRAZOLE
     Indication: Product used for unknown indication
     Route: 065
  186. PANTOPRAZOLE [Suspect]
     Active Substance: PANTOPRAZOLE
     Route: 048
  187. PANTOPRAZOLE [Suspect]
     Active Substance: PANTOPRAZOLE
     Route: 016
  188. ORENCIA [Suspect]
     Active Substance: ABATACEPT
     Indication: Psoriatic arthropathy
     Route: 058
  189. ORENCIA [Suspect]
     Active Substance: ABATACEPT
     Indication: Rheumatoid arthritis
     Route: 065
  190. ORENCIA [Suspect]
     Active Substance: ABATACEPT
     Route: 058
  191. ORENCIA [Suspect]
     Active Substance: ABATACEPT
     Dosage: UNK (11 MONTHS)
     Route: 042
  192. ORENCIA [Suspect]
     Active Substance: ABATACEPT
     Route: 042
  193. ORENCIA [Suspect]
     Active Substance: ABATACEPT
     Route: 065
  194. ORENCIA [Suspect]
     Active Substance: ABATACEPT
     Route: 065
  195. ORENCIA [Suspect]
     Active Substance: ABATACEPT
     Route: 065
  196. ORENCIA [Suspect]
     Active Substance: ABATACEPT
     Route: 058
  197. ORENCIA [Suspect]
     Active Substance: ABATACEPT
     Route: 015
  198. ACETAMINOPHEN [Suspect]
     Active Substance: ACETAMINOPHEN
     Indication: Product used for unknown indication
  199. ACETAMINOPHEN [Suspect]
     Active Substance: ACETAMINOPHEN
     Indication: Rheumatoid arthritis
  200. ACETAMINOPHEN [Suspect]
     Active Substance: ACETAMINOPHEN
  201. STELARA [Suspect]
     Active Substance: USTEKINUMAB
     Indication: Rheumatoid arthritis
     Route: 058
  202. STELARA [Suspect]
     Active Substance: USTEKINUMAB
     Route: 042
  203. ERELZI [Suspect]
     Active Substance: ETANERCEPT-SZZS
     Indication: Rheumatoid arthritis
     Route: 058
  204. TOFACITINIB CITRATE [Suspect]
     Active Substance: TOFACITINIB CITRATE
     Indication: Rheumatoid arthritis
     Route: 058
  205. TOFACITINIB CITRATE [Suspect]
     Active Substance: TOFACITINIB CITRATE
     Indication: Product used for unknown indication
     Route: 065
  206. CODEINE [Concomitant]
     Active Substance: CODEINE
     Indication: Product used for unknown indication
  207. SULFAMETHOXAZOLE AND TRIMETHOPRIM [Suspect]
     Active Substance: SULFAMETHOXAZOLE\TRIMETHOPRIM
     Indication: Product used for unknown indication
     Route: 065
  208. ERYTHROMYCIN [Concomitant]
     Active Substance: ERYTHROMYCIN
     Indication: Product used for unknown indication
  209. PREVACID [Suspect]
     Active Substance: LANSOPRAZOLE
     Indication: Product used for unknown indication
     Route: 065
  210. PREVACID [Suspect]
     Active Substance: LANSOPRAZOLE
     Route: 048
  211. VITAMIN C [Concomitant]
     Active Substance: ASCORBIC ACID
     Indication: Product used for unknown indication
  212. COSENTYX [Suspect]
     Active Substance: SECUKINUMAB
     Indication: Psoriatic arthropathy
     Route: 005
  213. COSENTYX [Suspect]
     Active Substance: SECUKINUMAB
     Indication: Rheumatoid arthritis
  214. DILTIAZEM [Suspect]
     Active Substance: DILTIAZEM
     Indication: Product used for unknown indication
  215. DICLOFENAC SODIUM [Suspect]
     Active Substance: DICLOFENAC SODIUM
     Indication: Product used for unknown indication
  216. DICLOFENAC SODIUM [Suspect]
     Active Substance: DICLOFENAC SODIUM
  217. DICLOFENAC SODIUM [Suspect]
     Active Substance: DICLOFENAC SODIUM
  218. LISINOPRIL [Concomitant]
     Active Substance: LISINOPRIL
     Indication: Product used for unknown indication
  219. MYCOPHENOLATE MOFETIL [Suspect]
     Active Substance: MYCOPHENOLATE MOFETIL
     Indication: Product used for unknown indication
     Route: 065
  220. LISINOPRIL [Concomitant]
     Active Substance: LISINOPRIL
     Indication: Product used for unknown indication
  221. LYRICA [Suspect]
     Active Substance: PREGABALIN
     Indication: Fibromyalgia
     Route: 065
  222. RAMIPRIL [Suspect]
     Active Substance: RAMIPRIL
     Indication: Product used for unknown indication
     Route: 065
  223. ISOPROPYL ALCOHOL [Suspect]
     Active Substance: ISOPROPYL ALCOHOL
     Indication: Product used for unknown indication
     Route: 061
  224. QUETIAPINE FUMARATE [Concomitant]
     Active Substance: QUETIAPINE FUMARATE
     Indication: Product used for unknown indication
  225. PREDNISONE [Suspect]
     Active Substance: PREDNISONE
     Indication: Rheumatoid arthritis
     Route: 048
  226. INFLIXIMAB [Suspect]
     Active Substance: INFLIXIMAB
     Indication: Product used for unknown indication
     Route: 042
  227. INFLIXIMAB [Suspect]
     Active Substance: INFLIXIMAB
  228. ALBUTEROL [Concomitant]
     Active Substance: ALBUTEROL
     Indication: Product used for unknown indication
  229. ATIVAN [Concomitant]
     Active Substance: LORAZEPAM
     Indication: Product used for unknown indication
  230. RISEDRONATE SODIUM [Concomitant]
     Active Substance: RISEDRONATE SODIUM
     Indication: Product used for unknown indication
  231. LEFLUNOMIDE [Suspect]
     Active Substance: LEFLUNOMIDE
     Indication: Rheumatoid arthritis
     Route: 048
  232. LORAZEPAM [Concomitant]
     Active Substance: LORAZEPAM
     Indication: Product used for unknown indication

REACTIONS (13)
  - Lower respiratory tract infection [Fatal]
  - Frequent bowel movements [Fatal]
  - Lung disorder [Fatal]
  - Inflammation [Fatal]
  - Glossodynia [Fatal]
  - Grip strength [Fatal]
  - Foot deformity [Fatal]
  - General physical health deterioration [Fatal]
  - Liver disorder [Fatal]
  - Liver injury [Fatal]
  - Feeling hot [Fatal]
  - Lip dry [Fatal]
  - Hepatic cirrhosis [Fatal]
